FAERS Safety Report 20818827 (Version 2)
Quarter: 2022Q3

REPORT INFORMATION
  Report Type: Spontaneous
  Country: NZ (occurrence: NZ)
  Receive Date: 20220512
  Receipt Date: 20220712
  Transmission Date: 20221026
  Serious: Yes (Hospitalization)
  Sender: FDA-Public Use
  Company Number: NZ-ABBVIE-22K-118-4390277-00

PATIENT
  Age: 66 Year
  Sex: Male

DRUGS (4)
  1. VENETOCLAX [Suspect]
     Active Substance: VENETOCLAX
     Indication: Chronic lymphocytic leukaemia
     Route: 048
     Dates: start: 20220110
  2. VENETOCLAX [Suspect]
     Active Substance: VENETOCLAX
     Dosage: DOSE INCREASED
     Route: 048
     Dates: start: 20220119
  3. VENETOCLAX [Suspect]
     Active Substance: VENETOCLAX
     Dosage: DOSE INCREASED
     Route: 048
     Dates: start: 20220126
  4. VENETOCLAX [Suspect]
     Active Substance: VENETOCLAX
     Route: 048
     Dates: start: 20220204

REACTIONS (5)
  - Aplasia pure red cell [Unknown]
  - White blood cell count abnormal [Unknown]
  - Bacterial sepsis [Unknown]
  - Pyrexia [Unknown]
  - COVID-19 [Unknown]

NARRATIVE: CASE EVENT DATE: 20220101
